FAERS Safety Report 6269580-8 (Version None)
Quarter: 2009Q3

REPORT INFORMATION
  Report Type: 
  Country: None (occurrence: None)
  Receive Date: 20090715
  Receipt Date: 20090707
  Transmission Date: 20100115
  Serious: Yes (Disabling, Other)
  Sender: FDA-Public Use
  Company Number: BE-GENENTECH-280623

PATIENT
  Sex: Female

DRUGS (11)
  1. MABTHERA [Suspect]
     Indication: NON-HODGKIN'S LYMPHOMA
     Dosage: 250 MG/M2, UNK
     Route: 042
     Dates: start: 20020101, end: 20090301
  2. MABTHERA [Suspect]
     Dosage: 375 MG/M2, UNK
     Route: 042
     Dates: start: 20090101
  3. ZEVALIN [Concomitant]
     Indication: DRUG USE FOR UNKNOWN INDICATION
     Dosage: UNK
     Dates: start: 20080801, end: 20080801
  4. EMCONCOR [Concomitant]
     Indication: DRUG USE FOR UNKNOWN INDICATION
     Dosage: UNK
  5. CYCLOPHOSPHAMIDE [Concomitant]
     Indication: DRUG USE FOR UNKNOWN INDICATION
     Dosage: UNK
     Dates: start: 20000101, end: 20090101
  6. DOXORUBICIN HCL [Concomitant]
     Indication: DRUG USE FOR UNKNOWN INDICATION
     Dosage: UNK
     Dates: start: 20000101, end: 20090101
  7. DOXORUBICIN HCL [Concomitant]
     Dosage: UNK
     Dates: start: 20090301, end: 20090301
  8. PREDNISONE TAB [Concomitant]
     Indication: DRUG USE FOR UNKNOWN INDICATION
     Dosage: UNK
     Dates: start: 20000101, end: 20090101
  9. PREDNISONE TAB [Concomitant]
     Dosage: UNK
     Dates: start: 20090301, end: 20090301
  10. VINCRISTINE [Concomitant]
     Indication: DRUG USE FOR UNKNOWN INDICATION
     Dosage: UNK
     Dates: start: 20000101, end: 20090101
  11. LEUKERAN [Concomitant]
     Indication: DRUG USE FOR UNKNOWN INDICATION
     Dosage: UNK
     Dates: start: 20050101, end: 20080101

REACTIONS (2)
  - NEUTROPENIA [None]
  - PROGRESSIVE MULTIFOCAL LEUKOENCEPHALOPATHY [None]
